FAERS Safety Report 4969045-7 (Version None)
Quarter: 2006Q2

REPORT INFORMATION
  Report Type: 
  Country: None (occurrence: None)
  Receive Date: 20060411
  Receipt Date: 20051019
  Transmission Date: 20061013
  Serious: Yes (Hospitalization)
  Sender: FDA-Public Use
  Company Number: US-MERCK-0510USA08327

PATIENT
  Age: 66 Year
  Sex: Female
  Weight: 45 kg

DRUGS (5)
  1. VIOXX [Suspect]
     Indication: SPINAL OSTEOARTHRITIS
     Route: 048
     Dates: start: 20010329, end: 20020505
  2. VIOXX [Suspect]
     Route: 048
     Dates: start: 20010329, end: 20020505
  3. VIOXX [Suspect]
     Indication: SPINAL COLUMN STENOSIS
     Route: 048
     Dates: start: 20010329, end: 20020505
  4. VIOXX [Suspect]
     Route: 048
     Dates: start: 20010329, end: 20020505
  5. HYDROCODONE BITARTRATE [Concomitant]
     Route: 065

REACTIONS (33)
  - ANXIETY [None]
  - AORTIC ARTERIOSCLEROSIS [None]
  - ATRIAL FIBRILLATION [None]
  - BACK DISORDER [None]
  - BLOOD IRON DECREASED [None]
  - BLOOD PRESSURE INCREASED [None]
  - CAROTID ARTERY STENOSIS [None]
  - CEREBROVASCULAR ACCIDENT [None]
  - CHEST PAIN [None]
  - COELIAC DISEASE [None]
  - COORDINATION ABNORMAL [None]
  - CORONARY ARTERY EMBOLISM [None]
  - COUGH [None]
  - DIARRHOEA [None]
  - ELECTROCARDIOGRAM T WAVE INVERSION [None]
  - GASTRITIS [None]
  - HIATUS HERNIA [None]
  - HUMERUS FRACTURE [None]
  - IRON DEFICIENCY [None]
  - ISCHAEMIA [None]
  - MITRAL VALVE INCOMPETENCE [None]
  - NORMOCHROMIC NORMOCYTIC ANAEMIA [None]
  - OVERDOSE [None]
  - PAIN [None]
  - QRS AXIS ABNORMAL [None]
  - RECTAL HAEMORRHAGE [None]
  - RENAL MASS [None]
  - SINUS TACHYCARDIA [None]
  - SPINAL DISORDER [None]
  - SUBCLAVIAN ARTERY STENOSIS [None]
  - THYROID CYST [None]
  - VENTRICULAR HYPERTROPHY [None]
  - WEIGHT DECREASED [None]
